FAERS Safety Report 8490302-4 (Version None)
Quarter: 2012Q3

REPORT INFORMATION
  Report Type: 
  Country: None (occurrence: None)
  Receive Date: 20120705
  Receipt Date: 20120627
  Transmission Date: 20120928
  Serious: Yes (Hospitalization)
  Sender: FDA-Public Use
  Company Number: US-ASTRAZENECA-2012SE43228

PATIENT
  Age: 81 Year
  Sex: Female
  Weight: 65.8 kg

DRUGS (7)
  1. SEROQUEL [Suspect]
     Indication: HALLUCINATION
     Route: 048
     Dates: start: 20111001
  2. SEROQUEL [Suspect]
     Route: 048
     Dates: start: 20120501
  3. BLOOD PRESSURE MEDICATION [Concomitant]
     Dosage: DAILY
  4. SEROQUEL [Suspect]
     Indication: DEMENTIA
     Route: 048
     Dates: start: 20111001
  5. SYNTHROID [Concomitant]
     Indication: THYROID DISORDER
  6. ASPIRIN [Concomitant]
     Dosage: DAILY
  7. SEROQUEL [Suspect]
     Route: 048
     Dates: start: 20120501

REACTIONS (7)
  - SOMNOLENCE [None]
  - DEPRESSION [None]
  - THERAPEUTIC RESPONSE UNEXPECTED WITH DRUG SUBSTITUTION [None]
  - THYROID DISORDER [None]
  - FATIGUE [None]
  - INTENTIONAL DRUG MISUSE [None]
  - OFF LABEL USE [None]
